FAERS Safety Report 7558173-8 (Version None)
Quarter: 2011Q2

REPORT INFORMATION
  Report Type: 
  Country: None (occurrence: None)
  Receive Date: 20110620
  Receipt Date: 20110531
  Transmission Date: 20111010
  Serious: No
  Sender: FDA-Public Use
  Company Number: US-B.I. PHARMACEUTICALS,INC./RIDGEFIELD-2011-BP-10094BP

PATIENT
  Sex: Female

DRUGS (7)
  1. CRESTOR [Concomitant]
     Indication: BLOOD HOMOCYSTEINE INCREASED
  2. ZANAC [Concomitant]
     Indication: INSOMNIA
     Route: 048
  3. METOPROLOL TARTRATE [Concomitant]
  4. CRESTOR [Concomitant]
     Indication: PLAGUE
     Dosage: 10 MG
     Route: 048
  5. PRADAXA [Suspect]
     Indication: ATRIAL FIBRILLATION
     Dosage: 300 MG
     Route: 048
     Dates: start: 20110331
  6. MULTAQ [Concomitant]
     Indication: ATRIAL FIBRILLATION
     Route: 048
  7. METOPROLOL TARTRATE [Concomitant]
     Indication: HEART RATE INCREASED
     Dosage: 25 MG
     Route: 048

REACTIONS (2)
  - DIARRHOEA [None]
  - INSOMNIA [None]
